FAERS Safety Report 4457410-6 (Version None)
Quarter: 2004Q3

REPORT INFORMATION
  Report Type: 
  Country: None (occurrence: None)
  Receive Date: 20040922
  Receipt Date: 20040907
  Transmission Date: 20050211
  Serious: Yes (Hospitalization)
  Sender: FDA-Public Use
  Company Number: USA040876920

PATIENT
  Age: 9 Year
  Sex: Male
  Weight: 28 kg

DRUGS (2)
  1. STRATTERA [Suspect]
     Indication: ATTENTION DEFICIT/HYPERACTIVITY DISORDER
     Dosage: 100 MG/1 DAY
     Dates: start: 20021101
  2. FLUVOXAMINE [Concomitant]

REACTIONS (5)
  - DECREASED APPETITE [None]
  - DEPRESSION [None]
  - GROWTH RETARDATION [None]
  - OPPOSITIONAL DEFIANT DISORDER [None]
  - SUICIDAL IDEATION [None]
